FAERS Safety Report 5189063-6 (Version None)
Quarter: 2006Q4

REPORT INFORMATION
  Report Type: 
  Country: None (occurrence: None)
  Receive Date: 20061215
  Receipt Date: 20061212
  Transmission Date: 20070319
  Serious: Yes (Other)
  Sender: FDA-Public Use
  Company Number: CED-AE-06-006

PATIENT
  Age: 18 Year
  Sex: Female

DRUGS (1)
  1. METHIMAZOLE [Suspect]
     Indication: HYPERTHYROIDISM

REACTIONS (4)
  - ANTINEUTROPHIL CYTOPLASMIC ANTIBODY POSITIVE [None]
  - PULMONARY VASCULITIS [None]
  - RESPIRATORY FAILURE [None]
  - SYSTEMIC LUPUS ERYTHEMATOSUS [None]
